FAERS Safety Report 5312134-8 (Version None)
Quarter: 2007Q2

REPORT INFORMATION
  Report Type: 
  Country: None (occurrence: None)
  Receive Date: 20070430
  Receipt Date: 20060925
  Transmission Date: 20071010
  Serious: No
  Sender: FDA-Public Use
  Company Number: 2006UW18705

PATIENT
  Sex: Female

DRUGS (1)
  1. NEXIUM [Suspect]
     Indication: GASTROINTESTINAL EROSION
     Route: 048
     Dates: start: 20060501

REACTIONS (3)
  - CHAPPED LIPS [None]
  - DRY MOUTH [None]
  - DYSGEUSIA [None]
